FAERS Safety Report 4883917-3 (Version None)
Quarter: 2006Q1

REPORT INFORMATION
  Report Type: 
  Country: None (occurrence: None)
  Receive Date: 20060113
  Receipt Date: 20060103
  Transmission Date: 20060701
  Serious: Yes (Death, Hospitalization)
  Sender: FDA-Public Use
  Company Number: FR200601000108

PATIENT
  Age: 63 Year
  Sex: Female

DRUGS (3)
  1. GEMZAR [Suspect]
     Indication: LUNG ADENOCARCINOMA METASTATIC
     Dosage: 1 G, OTHER, INTRAVENOUS
     Route: 011
     Dates: start: 20050919
  2. CARBOPLATIN [Concomitant]
  3. PREDNISOLONE [Concomitant]

REACTIONS (2)
  - HAEMOLYTIC ANAEMIA [None]
  - THROMBOCYTOPENIA [None]
